FAERS Safety Report 9845464 (Version 1)
Quarter: 2014Q1

REPORT INFORMATION
  Report Type: Spontaneous
  Country: US (occurrence: None)
  Receive Date: 20140122
  Receipt Date: 20140122
  Transmission Date: 20141002
  Serious: Yes (Hospitalization)
  Sender: FDA-Public Use
  Company Number: 2014-US-000282

PATIENT
  Age: 67 Year
  Sex: Male

DRUGS (1)
  1. PRIALT (ZICONOTIDE ACETATE) INTRATHECAL INFUSION, UG/ML [Suspect]
     Indication: PAIN
     Dosage: UNK UG, QH, INTRATHECAL
     Route: 037
     Dates: start: 201303, end: 201309

REACTIONS (4)
  - Cerebrovascular accident [None]
  - Respiratory arrest [None]
  - Asthenia [None]
  - Unresponsive to stimuli [None]
